FAERS Safety Report 8453792-9 (Version None)
Quarter: 2012Q2

REPORT INFORMATION
  Report Type: 
  Country: None (occurrence: None)
  Receive Date: 20120620
  Receipt Date: 20120612
  Transmission Date: 20120825
  Serious: Yes (Other)
  Sender: FDA-Public Use
  Company Number: US-ELI_LILLY_AND_COMPANY-US201206004464

PATIENT
  Age: 50 Year
  Sex: Male

DRUGS (3)
  1. EFFIENT [Suspect]
     Indication: STENT PLACEMENT
     Dosage: 60 MG, LOADING DOSE
     Route: 048
  2. EFFIENT [Suspect]
     Dosage: 10 MG, QD, MAINTENANCE DOSE
  3. ANGIOMAX [Concomitant]

REACTIONS (1)
  - CORONARY ARTERY THROMBOSIS [None]
